FAERS Safety Report 14531429 (Version 1)
Quarter: 2018Q1

REPORT INFORMATION
  Report Type: Spontaneous
  Country: US (occurrence: US)
  Receive Date: 20180213
  Receipt Date: 20180213
  Transmission Date: 20180509
  Serious: Yes (Disabling, Other)
  Sender: FDA-Public Use
  Company Number: None

PATIENT
  Age: 59 Year
  Sex: Male
  Weight: 90 kg

DRUGS (1)
  1. NIFEDIPINE. [Suspect]
     Active Substance: NIFEDIPINE
     Route: 048
     Dates: start: 20171228, end: 20180205

REACTIONS (5)
  - Gait disturbance [None]
  - Pain [None]
  - Systemic lupus erythematosus [None]
  - Impaired work ability [None]
  - Musculoskeletal disorder [None]

NARRATIVE: CASE EVENT DATE: 20180212
